FAERS Safety Report 10497888 (Version 1)
Quarter: 2014Q4

REPORT INFORMATION
  Report Type: Spontaneous
  Country: US (occurrence: US)
  Receive Date: 20141006
  Receipt Date: 20141006
  Transmission Date: 20150528
  Serious: No
  Sender: FDA-Public Use
  Company Number: US-PFIZER INC-2014271602

PATIENT
  Age: 74 Year
  Sex: Male
  Weight: 81.63 kg

DRUGS (1)
  1. GABAPENTIN. [Suspect]
     Active Substance: GABAPENTIN
     Indication: PAIN IN EXTREMITY
     Dosage: UNK

REACTIONS (6)
  - Pain [Unknown]
  - Headache [Unknown]
  - Insomnia [Unknown]
  - Drug ineffective for unapproved indication [Unknown]
  - Pain in extremity [Unknown]
  - Somnolence [Unknown]
